FAERS Safety Report 7994830-7 (Version None)
Quarter: 2011Q4

REPORT INFORMATION
  Report Type: 
  Country: None (occurrence: None)
  Receive Date: 20111217
  Receipt Date: 20111217
  Transmission Date: 20120403
  Serious: No
  Sender: FDA-Public Use
  Company Number: None

PATIENT

DRUGS (2)
  1. CYPROHEPTADINE HCL [Suspect]
     Dosage: ORAL
     Route: 048
  2. TRILAFON [Suspect]
     Dosage: ORAL

REACTIONS (5)
  - DRUG DISPENSING ERROR [None]
  - MEDICATION ERROR [None]
  - TREMOR [None]
  - WRONG DRUG ADMINISTERED [None]
  - INSOMNIA [None]
